FAERS Safety Report 25716775 (Version 1)
Quarter: 2025Q3

REPORT INFORMATION
  Report Type: Spontaneous
  Country: US (occurrence: US)
  Receive Date: 20250822
  Receipt Date: 20250822
  Transmission Date: 20251021
  Serious: Yes (Hospitalization, Other)
  Sender: LIQUIDIA TECHNOLOGIES
  Company Number: US-LIQUIDIA TECHNOLOGIES, INC.-LIQ-2025-000039

PATIENT

DRUGS (13)
  1. YUTREPIA [Suspect]
     Active Substance: TREPROSTINIL SODIUM
     Indication: Pulmonary arterial hypertension
     Dosage: 26.5 MICROGRAM (INHALE 2 BREATHS 26.5 MCG PER CAPSULE), QID
     Route: 055
     Dates: start: 202506, end: 202507
  2. YUTREPIA [Suspect]
     Active Substance: TREPROSTINIL SODIUM
     Indication: Pulmonary arterial hypertension
     Dosage: 53 MICROGRAM, QID (INHALE 2 BREATHS PER CAPSULE)
     Route: 055
     Dates: start: 202507, end: 202507
  3. YUTREPIA [Suspect]
     Active Substance: TREPROSTINIL SODIUM
     Dosage: 53 MICROGRAM, QID (INHALE 2 BREATHS PER CAPSULE)
     Route: 055
     Dates: start: 202507, end: 202508
  4. OPSUMIT [Concomitant]
     Active Substance: MACITENTAN
     Indication: Product used for unknown indication
     Route: 065
  5. ELIQUIS [Concomitant]
     Active Substance: APIXABAN
     Indication: Product used for unknown indication
     Route: 065
  6. TADALAFIL [Concomitant]
     Active Substance: TADALAFIL
     Indication: Product used for unknown indication
     Route: 065
  7. PANTOPRAZOLE [Concomitant]
     Active Substance: PANTOPRAZOLE
     Indication: Product used for unknown indication
     Route: 065
  8. AMOXICILLIN [Concomitant]
     Active Substance: AMOXICILLIN
     Indication: Product used for unknown indication
     Route: 065
  9. DOCUSATE [Concomitant]
     Active Substance: DOCUSATE
     Indication: Product used for unknown indication
     Route: 065
  10. AZITHROMYCIN [Concomitant]
     Active Substance: AZITHROMYCIN
     Indication: Product used for unknown indication
     Route: 065
  11. POTASSIUM CHLORIDE [Concomitant]
     Active Substance: POTASSIUM CHLORIDE
     Indication: Product used for unknown indication
     Route: 065
  12. LASIX [Concomitant]
     Active Substance: FUROSEMIDE
     Indication: Product used for unknown indication
     Route: 065
  13. SOTATERCEPT [Concomitant]
     Active Substance: SOTATERCEPT
     Indication: Product used for unknown indication
     Route: 065

REACTIONS (11)
  - Unevaluable event [Unknown]
  - Epistaxis [Recovered/Resolved]
  - Oral pruritus [Unknown]
  - Productive cough [Unknown]
  - Epistaxis [Recovered/Resolved]
  - Productive cough [Recovered/Resolved]
  - Throat irritation [Unknown]
  - Chest discomfort [Unknown]
  - Nausea [Unknown]
  - Dizziness [Recovered/Resolved]
  - Dizziness [Recovered/Resolved]

NARRATIVE: CASE EVENT DATE: 20250101
